FAERS Safety Report 24793501 (Version 1)
Quarter: 2024Q4

REPORT INFORMATION
  Report Type: Spontaneous
  Country: IT (occurrence: IT)
  Receive Date: 20241231
  Receipt Date: 20241231
  Transmission Date: 20250114
  Serious: Yes (Other)
  Sender: HIKMA
  Company Number: IT-HIKMA PHARMACEUTICALS-IT-H14001-24-11993

PATIENT
  Age: 47 Year
  Sex: Female
  Weight: 80 kg

DRUGS (4)
  1. CYCLOPHOSPHAMIDE [Suspect]
     Active Substance: CYCLOPHOSPHAMIDE
     Indication: Breast cancer
     Dosage: 1ST CYCLE EPIRUBICIN 170 MG IV + CYCLOPHOSPHAMIDE 1150 MG
     Route: 042
     Dates: start: 20240319, end: 202405
  2. CYCLOPHOSPHAMIDE [Suspect]
     Active Substance: CYCLOPHOSPHAMIDE
     Dosage: 2ND CYCLE EPIRUBICIN 140 MG IV + CYCLOPHOSPHAMIDE 900 MG IV
     Route: 042
  3. EPIRUBICIN [Suspect]
     Active Substance: EPIRUBICIN
     Dosage: 2ND CYCLE EPIRUBICIN 140 MG IV + CYCLOPHOSPHAMIDE 900 MG IV
     Route: 042
  4. EPIRUBICIN [Suspect]
     Active Substance: EPIRUBICIN
     Indication: Breast cancer
     Dosage: 1ST CYCLE EPIRUBICIN 170 MG IV + CYCLOPHOSPHAMIDE 1150 MG IV
     Route: 042
     Dates: start: 20240319, end: 202405

REACTIONS (3)
  - Cancer fatigue [Recovering/Resolving]
  - Nausea [Recovered/Resolved]
  - Neutropenia [Recovered/Resolved]

NARRATIVE: CASE EVENT DATE: 20240320
